FAERS Safety Report 5529575-6 (Version None)
Quarter: 2007Q4

REPORT INFORMATION
  Report Type: 
  Country: None (occurrence: None)
  Receive Date: 20071129
  Receipt Date: 20071119
  Transmission Date: 20080405
  Serious: Yes (Other)
  Sender: FDA-Public Use
  Company Number: US-PFIZER INC-2006116177

PATIENT
  Sex: Female

DRUGS (3)
  1. BEXTRA [Suspect]
     Indication: MUSCULOSKELETAL PAIN
  2. CELEBREX [Suspect]
     Indication: ARTHRITIS
  3. VIOXX [Suspect]
     Indication: ARTHRITIS

REACTIONS (23)
  - ACTINIC KERATOSIS [None]
  - ASTHMA [None]
  - BLOOD PRESSURE INCREASED [None]
  - BRONCHITIS [None]
  - BURSITIS [None]
  - FIBROMYALGIA [None]
  - HYPERSOMNIA [None]
  - INFLUENZA [None]
  - INTERVERTEBRAL DISC DISORDER [None]
  - LABYRINTHITIS [None]
  - LICHEN PLANUS [None]
  - NEOPLASM SKIN [None]
  - OSTEOARTHRITIS [None]
  - OSTEOPENIA [None]
  - RESTLESS LEGS SYNDROME [None]
  - RIB FRACTURE [None]
  - ROSACEA [None]
  - SCIATICA [None]
  - SEBORRHOEIC KERATOSIS [None]
  - SLEEP APNOEA SYNDROME [None]
  - SPINAL COLUMN STENOSIS [None]
  - SPONDYLOLISTHESIS [None]
  - STRESS URINARY INCONTINENCE [None]
